FAERS Safety Report 12460388 (Version 2)
Quarter: 2016Q4

REPORT INFORMATION
  Report Type: Spontaneous
  Country: US (occurrence: US)
  Receive Date: 20160613
  Receipt Date: 20161107
  Transmission Date: 20170207
  Serious: No
  Sender: FDA-Public Use
  Company Number: US-PFIZER INC-2016239152

PATIENT
  Age: 78 Year
  Sex: Female

DRUGS (11)
  1. XELJANZ [Suspect]
     Active Substance: TOFACITINIB CITRATE
     Dosage: UNK
  2. HYDROXYCHLOROQUINE [Concomitant]
     Active Substance: HYDROXYCHLOROQUINE
     Indication: RHEUMATOID ARTHRITIS
     Dosage: 200 MG, 2X/DAY
  3. KCL [Concomitant]
     Active Substance: POTASSIUM CHLORIDE
     Dosage: 20 MEQ, 2X/DAY
  4. ESTRADIOL. [Concomitant]
     Active Substance: ESTRADIOL
     Indication: OSTEOPOROSIS
     Dosage: 0.5 MG, DAILY
  5. ARAVA [Suspect]
     Active Substance: LEFLUNOMIDE
     Dosage: UNK
     Dates: start: 201509
  6. FOLIC ACID. [Concomitant]
     Active Substance: FOLIC ACID
     Dosage: 1 MG, UNK
  7. MISOPROSTOL. [Concomitant]
     Active Substance: MISOPROSTOL
     Indication: ABDOMINAL DISCOMFORT
     Dosage: 200 UG, 2X/DAY
  8. CITRACAL [Concomitant]
     Active Substance: CALCIUM CITRATE
     Dosage: UNK
  9. METHOTREXATE SODIUM. [Suspect]
     Active Substance: METHOTREXATE SODIUM
     Indication: RHEUMATOID ARTHRITIS
     Dosage: 25 MG, WEEKLY
     Route: 058
  10. METHOTREXATE SODIUM. [Suspect]
     Active Substance: METHOTREXATE SODIUM
     Indication: RHEUMATOID ARTHRITIS
     Dosage: UNK
     Route: 048
  11. ICAPS [Concomitant]
     Active Substance: MINERALS\VITAMINS
     Indication: AGE-RELATED MACULAR DEGENERATION
     Dosage: 1 DF, 2X/DAY

REACTIONS (4)
  - Drug ineffective [Unknown]
  - Nausea [Not Recovered/Not Resolved]
  - Malaise [Recovered/Resolved]
  - Alopecia [Unknown]

NARRATIVE: CASE EVENT DATE: 201509
